FAERS Safety Report 7238993-X (Version None)
Quarter: 2011Q1

REPORT INFORMATION
  Report Type: 
  Country: None (occurrence: None)
  Receive Date: 20110114
  Receipt Date: 20110105
  Transmission Date: 20110831
  Serious: Yes (Hospitalization)
  Sender: FDA-Public Use
  Company Number: 025006

PATIENT
  Age: 73 Year
  Sex: Female

DRUGS (3)
  1. OMEPRAZOLE [Suspect]
     Indication: PEPTIC ULCER
     Dosage: 20 MG QD,
  2. LEVOTHYROXINE [Suspect]
     Dosage: 100 UG QD
  3. PARACETAMOL/ CAFFINE [Suspect]
     Indication: HEADACHE

REACTIONS (9)
  - ASTHENIA [None]
  - CHILLS [None]
  - ABDOMINAL PAIN [None]
  - HEADACHE [None]
  - PYREXIA [None]
  - MYALGIA [None]
  - BLOOD CREATININE INCREASED [None]
  - MALAISE [None]
  - BIOPSY KIDNEY ABNORMAL [None]
